FAERS Safety Report 7244062-5 (Version None)
Quarter: 2011Q1

REPORT INFORMATION
  Report Type: 
  Country: None (occurrence: None)
  Receive Date: 20110125
  Receipt Date: 20110118
  Transmission Date: 20110831
  Serious: Yes (Other)
  Sender: FDA-Public Use
  Company Number: DE-TEVA-264182ISR

PATIENT
  Sex: Male

DRUGS (7)
  1. METFORMIN HCL [Concomitant]
  2. HYDROCHLOROTHIAZIDE [Concomitant]
  3. CITALOPRAM [Concomitant]
  4. CANDESARTAN CILEXETIL [Concomitant]
  5. COPAXONE [Suspect]
     Indication: MULTIPLE SCLEROSIS
     Route: 058
     Dates: start: 20100401, end: 20110117
  6. FLUVASTATIN SODIUM [Concomitant]
  7. CORTICOSTEROID NOS [Concomitant]
     Dosage: MASSIVE DOSE THERAPY
     Dates: start: 20100101

REACTIONS (2)
  - JOINT EFFUSION [None]
  - OSTEONECROSIS [None]
